FAERS Safety Report 7230255-X (Version None)
Quarter: 2011Q1

REPORT INFORMATION
  Report Type: 
  Country: None (occurrence: None)
  Receive Date: 20110118
  Receipt Date: 20110113
  Transmission Date: 20110831
  Serious: No
  Sender: FDA-Public Use
  Company Number: US-PFIZER INC-2011010104

PATIENT
  Sex: Female
  Weight: 56.689 kg

DRUGS (11)
  1. KLONOPIN [Concomitant]
     Indication: ANXIETY
     Dosage: 0.5 MG, 1X/DAY
     Route: 048
  2. MIRTAZAPINE [Concomitant]
     Indication: DEPRESSION
     Dosage: 15 MG, 1X/DAY
  3. MIRTAZAPINE [Concomitant]
     Indication: ANXIETY
  4. NITROFURANTOIN [Concomitant]
     Indication: CYSTITIS
     Dosage: 100 MG, 1X/DAY
  5. SIMVASTATIN [Concomitant]
     Indication: BLOOD CHOLESTEROL ABNORMAL
     Dosage: 20 MG, 1X/DAY
  6. LOVAZA [Concomitant]
     Dosage: 1 G, 2X/DAY
     Route: 048
  7. CHANTIX [Suspect]
     Dosage: 1 MG, 2X/DAY
     Route: 048
  8. PANTOPRAZOLE [Concomitant]
     Indication: GASTRIC DISORDER
     Dosage: 40 MG, 1X/DAY
  9. SYNTHROID [Concomitant]
     Indication: THYROID DISORDER
     Dosage: 112 UG, 1X/DAY
     Route: 048
  10. CALTRATE [Concomitant]
     Dosage: 600 MG, 2X/DAY
  11. CHANTIX [Suspect]
     Indication: SMOKING CESSATION THERAPY
     Dosage: 0.5 MG, 1X/DAY
     Route: 048
     Dates: start: 20110101

REACTIONS (2)
  - VOMITING [None]
  - ABDOMINAL PAIN UPPER [None]
